FAERS Safety Report 21477163 (Version 1)
Quarter: 2022Q4

REPORT INFORMATION
  Report Type: Report from Study
  Country: FI (occurrence: FI)
  Receive Date: 20221019
  Receipt Date: 20221019
  Transmission Date: 20230113
  Serious: Yes (Hospitalization, Other)
  Sender: FDA-Public Use
  Company Number: FI-JNJFOC-20221023324

PATIENT

DRUGS (1)
  1. STELARA [Suspect]
     Active Substance: USTEKINUMAB
     Indication: Crohn^s disease
     Route: 058

REACTIONS (10)
  - Infection [Unknown]
  - Hepatitis [Unknown]
  - Lymphoma [Unknown]
  - Neuropathy peripheral [Unknown]
  - Alopecia [Unknown]
  - Vasculitis [Unknown]
  - Rash [Unknown]
  - Arthralgia [Unknown]
  - Headache [Unknown]
  - Therapeutic response decreased [Unknown]
